FAERS Safety Report 4763868-5 (Version None)
Quarter: 2005Q3

REPORT INFORMATION
  Report Type: 
  Country: None (occurrence: None)
  Receive Date: 20050906
  Receipt Date: 20050823
  Transmission Date: 20060218
  Serious: Yes (Other)
  Sender: FDA-Public Use
  Company Number: 200513433BCC

PATIENT
  Age: 70 Year
  Sex: Female
  Weight: 90.7194 kg

DRUGS (1)
  1. ALKA-MINTS (CALCIUM CARBONATE) [Suspect]
     Indication: PAIN
     Dosage: ORAL
     Route: 048
     Dates: start: 19970101

REACTIONS (6)
  - CARDIAC OPERATION [None]
  - DRUG INEFFECTIVE [None]
  - GASTROINTESTINAL HAEMORRHAGE [None]
  - INADEQUATE ANALGESIA [None]
  - RENAL FAILURE [None]
  - UTERINE NEOPLASM [None]
